FAERS Safety Report 8849226 (Version 1)
Quarter: 2012Q4

REPORT INFORMATION
  Report Type: Report from Study
  Country: CA (occurrence: CA)
  Receive Date: 20121019
  Receipt Date: 20121019
  Transmission Date: 20130627
  Serious: Yes (Other)
  Sender: FDA-Public Use
  Company Number: CA-JNJFOC-20121007455

PATIENT
  Sex: Male
  Weight: 91.7 kg

DRUGS (9)
  1. REMICADE [Suspect]
     Indication: RHEUMATOID ARTHRITIS
     Dosage: 72nd infusion
     Route: 042
     Dates: start: 20120817
  2. REMICADE [Suspect]
     Indication: RHEUMATOID ARTHRITIS
     Route: 042
     Dates: start: 2000
  3. METHOTREXATE [Concomitant]
     Route: 048
  4. FOLIC ACID [Concomitant]
     Route: 065
  5. ATENOLOL [Concomitant]
     Route: 065
  6. LIPITOR [Concomitant]
     Route: 065
  7. BABY ASA [Concomitant]
     Route: 065
  8. TYLENOL [Concomitant]
     Indication: ARTHRITIS
     Route: 065
  9. ACUPRIL [Concomitant]
     Route: 065

REACTIONS (3)
  - Rib fracture [Unknown]
  - Fall [Unknown]
  - Pain [Recovering/Resolving]
